FAERS Safety Report 26123560 (Version 2)
Quarter: 2025Q4

REPORT INFORMATION
  Report Type: Report from Study
  Country: JP (occurrence: JP)
  Receive Date: 20251204
  Receipt Date: 20251225
  Transmission Date: 20260117
  Serious: Yes (Other)
  Sender: ABBVIE
  Company Number: JP-ABBVIE-6503986

PATIENT
  Age: 70 Year
  Sex: Female

DRUGS (2)
  1. VYALEV [Suspect]
     Active Substance: FOSCARBIDOPA\FOSLEVODOPA
     Indication: Parkinson^s disease
     Route: 058
     Dates: start: 20250925
  2. BENSERAZIDE HYDROCHLORIDE\LEVODOPA [Concomitant]
     Active Substance: BENSERAZIDE HYDROCHLORIDE\LEVODOPA
     Indication: Parkinson^s disease
     Route: 048

REACTIONS (9)
  - Deep brain stimulation [Unknown]
  - Infusion site mass [Unknown]
  - Musculoskeletal disorder [Unknown]
  - Infusion site reaction [Unknown]
  - Movement disorder [Unknown]
  - Therapeutic product effect incomplete [Unknown]
  - Malaise [Unknown]
  - Speech disorder [Unknown]
  - Fall [Unknown]

NARRATIVE: CASE EVENT DATE: 20250101
